FAERS Safety Report 24136177 (Version 1)
Quarter: 2024Q3

REPORT INFORMATION
  Report Type: Spontaneous
  Country: GB (occurrence: GB)
  Receive Date: 20240725
  Receipt Date: 20240725
  Transmission Date: 20241017
  Serious: Yes (Other)
  Sender: PFIZER
  Company Number: None

PATIENT
  Sex: Female

DRUGS (1)
  1. DOXYCYCLINE [Suspect]
     Active Substance: DOXYCYCLINE\DOXYCYCLINE HYCLATE
     Dosage: UNK

REACTIONS (3)
  - Confusional state [Recovered/Resolved]
  - Nausea [Recovered/Resolved]
  - Dyspepsia [Recovered/Resolved]
